FAERS Safety Report 4394702-3 (Version None)
Quarter: 2004Q3

REPORT INFORMATION
  Report Type: 
  Country: None (occurrence: None)
  Receive Date: 20040706
  Receipt Date: 20040629
  Transmission Date: 20050211
  Serious: Yes (Hospitalization)
  Sender: FDA-Public Use
  Company Number: FRWYE863329JUN04

PATIENT
  Age: 73 Year
  Sex: Female

DRUGS (6)
  1. RAPAMUNE [Suspect]
     Indication: PROPHYLAXIS AGAINST TRANSPLANT REJECTION
     Dosage: 5 MG 1X PER 1 DAY
     Route: 048
     Dates: start: 20040331, end: 20040427
  2. DALACIN (CLINDAMYCIN PHOSPHATE, UNSPEC, 0) [Suspect]
     Dosage: 150 MG 6X PER 1 DAY
     Route: 048
     Dates: start: 20040427, end: 20040505
  3. SOLUPRED (PREDNISOLONE SODIUM SULFOBENZOATE) [Concomitant]
  4. CALCIPARINE [Concomitant]
  5. AMLODIPINE BESYLATE [Concomitant]
  6. NEORAL [Concomitant]

REACTIONS (1)
  - CYTOLYTIC HEPATITIS [None]
